FAERS Safety Report 4317124-X (Version None)
Quarter: 2004Q1

REPORT INFORMATION
  Report Type: 
  Country: None (occurrence: None)
  Receive Date: 20040312
  Receipt Date: 20040225
  Transmission Date: 20041129
  Serious: Yes (Hospitalization)
  Sender: FDA-Public Use
  Company Number: 2001-BP-02062 (1)

PATIENT
  Age: 5 Month
  Sex: Female

DRUGS (18)
  1. NEVIRAPINE [Suspect]
     Indication: HUMAN IMMUNODEFICIENCY VIRUS TRANSMISSION
     Dosage: MG (NR), PO
     Route: 048
     Dates: start: 20001231, end: 20010521
  2. NEVIRAPINE [Suspect]
     Indication: PROPHYLAXIS AGAINST HIV INFECTION
     Dosage: MG (NR), PO
     Route: 048
     Dates: start: 20001231, end: 20010521
  3. OXYGEN (OXYGEN) [Concomitant]
  4. GENTAMYCIN (GENTAMYCIN) [Concomitant]
  5. COTRIMOXAZOLE / TRIMETHOPRIM [Concomitant]
  6. 4.2% NAHCO3 [Concomitant]
  7. 1/2 DARROWS DEXTROSE [Concomitant]
  8. MICONAZOLE ORAL GEL (MICONAZOLE) [Concomitant]
  9. ERYTHROMYCIN [Concomitant]
  10. ZINC OXIDE PASTE (ZINC PRODUCTS) [Concomitant]
  11. PHYTONADIONE [Concomitant]
  12. BENZYL  PENICILLIN (BENZYLPENICILLIN) [Concomitant]
  13. GENTAMICIN SULFATE [Concomitant]
  14. COTRIMOXAZOLE / TRIMETHOPRIM) [Concomitant]
  15. LORACARBEF (LORACARBEF) [Concomitant]
  16. ERYTHROMYCIN [Concomitant]
  17. ACETAMINOPHEN [Concomitant]
  18. BENZYL PENICILLIN (BENZYLPENICILLIN) [Concomitant]

REACTIONS (11)
  - ALANINE AMINOTRANSFERASE INCREASED [None]
  - ASPARTATE AMINOTRANSFERASE INCREASED [None]
  - BLOOD CREATININE INCREASED [None]
  - DERMATITIS ALLERGIC [None]
  - DERMATITIS DIAPER [None]
  - GASTROENTERITIS [None]
  - MATERNAL DRUGS AFFECTING FOETUS [None]
  - NEONATAL ASPIRATION [None]
  - ORAL CANDIDIASIS [None]
  - PNEUMONIA [None]
  - THROMBOCYTOPENIA [None]
